FAERS Safety Report 12232461 (Version 1)
Quarter: 2016Q2

REPORT INFORMATION
  Report Type: Spontaneous
  Country: US (occurrence: US)
  Receive Date: 20160401
  Receipt Date: 20160401
  Transmission Date: 20160815
  Serious: Yes (Other)
  Sender: FDA-Public Use
  Company Number: US-BAUSCH-BL-2016-006672

PATIENT
  Age: 25 Year
  Sex: Male

DRUGS (1)
  1. PHENYLEPHRINE [Suspect]
     Active Substance: PHENYLEPHRINE\PHENYLEPHRINE HYDROCHLORIDE
     Indication: PROCEDURAL PAIN
     Dosage: 120 MICROML, WHICH HAD BEEN INFUSING AT A RATE OF 12 ML/H THROUGH THE EPIDURAL PUMP.
     Route: 008

REACTIONS (4)
  - Anaesthetic complication [Recovered/Resolved]
  - Hypertension [Recovered/Resolved]
  - Incision site pain [Recovered/Resolved]
  - Incorrect route of drug administration [Unknown]
